FAERS Safety Report 22987023 (Version 2)
Quarter: 2024Q1

REPORT INFORMATION
  Report Type: Spontaneous
  Country: US (occurrence: US)
  Receive Date: 20230926
  Receipt Date: 20240214
  Transmission Date: 20240410
  Serious: No
  Sender: FDA-Public Use
  Company Number: US-BIOVITRUM-2023-US-015138

PATIENT
  Age: 83 Year
  Sex: Female

DRUGS (7)
  1. KINERET [Suspect]
     Active Substance: ANAKINRA
     Indication: Rheumatoid arthritis
     Dosage: 100MG QD
     Route: 058
  2. KINERET [Suspect]
     Active Substance: ANAKINRA
     Indication: Arthritis
     Dosage: 100MG DAILY,  100 MG ONCE A DAY IN THE MORNING
     Route: 058
     Dates: start: 20230903
  3. KINERET [Suspect]
     Active Substance: ANAKINRA
     Dosage: 100MG QOD (EVERY OTHER DAY)
     Route: 058
  4. ALLOPURINOL [Concomitant]
     Active Substance: ALLOPURINOL
     Indication: Product used for unknown indication
     Dosage: 300MG EVERY DAY
  5. HYDROXYCHLOROQUINE [Concomitant]
     Active Substance: HYDROXYCHLOROQUINE
     Indication: Product used for unknown indication
     Dosage: 200MG EVERY DAY
  6. LEFLUNOMIDE [Concomitant]
     Active Substance: LEFLUNOMIDE
     Indication: Product used for unknown indication
     Dosage: 10 MG EVERY DAY
  7. VITAMIN D3 [Concomitant]
     Active Substance: CHOLECALCIFEROL
     Indication: Product used for unknown indication

REACTIONS (4)
  - Insomnia [Unknown]
  - Dizziness [Unknown]
  - Frustration tolerance decreased [Unknown]
  - Gout [Unknown]
